FAERS Safety Report 25972272 (Version 3)
Quarter: 2025Q4

REPORT INFORMATION
  Report Type: Spontaneous
  Country: JP (occurrence: None)
  Receive Date: 20251029
  Receipt Date: 20251113
  Transmission Date: 20260117
  Serious: Yes (Hospitalization)
  Sender: ORION
  Company Number: JP-Orion Corporation ORION PHARMA-ENTC2025-0125

PATIENT
  Age: 70 Year
  Sex: Male

DRUGS (4)
  1. STALEVO [Suspect]
     Active Substance: CARBIDOPA\ENTACAPONE\LEVODOPA
     Indication: Parkinson^s disease
     Dosage: STRENGTH: L 100 (100 MG OF LEVODOPA, 10 MG OF CARBIDOPA AND 100 MG OF ENTACAPONE)
  2. STALEVO [Suspect]
     Active Substance: CARBIDOPA\ENTACAPONE\LEVODOPA
     Dosage: STRENGTH: LEVODOPA 100 MG-CARBIDOPA-ENTACAPONE, LEVODOPA: 600 MG
  3. CARBIDOPA\LEVODOPA [Concomitant]
     Active Substance: CARBIDOPA\LEVODOPA
     Dosage: FOR A LONG TIME
  4. NEUPRO [Concomitant]
     Active Substance: ROTIGOTINE
     Dosage: FOR A LONG TIME

REACTIONS (4)
  - COVID-19 [Recovering/Resolving]
  - Pneumonia aspiration [Recovering/Resolving]
  - Sepsis [Recovering/Resolving]
  - Muscle tightness [Recovering/Resolving]
